FAERS Safety Report 10460262 (Version 1)
Quarter: 2014Q3

REPORT INFORMATION
  Report Type: Spontaneous
  Country: SG (occurrence: SG)
  Receive Date: 20140917
  Receipt Date: 20140917
  Transmission Date: 20150326
  Serious: Yes (Other)
  Sender: FDA-Public Use
  Company Number: PHHY2014SG119049

PATIENT
  Age: 22 Year
  Sex: Male

DRUGS (1)
  1. PROMETHAZINE [Suspect]
     Active Substance: PROMETHAZINE\PROMETHAZINE HYDROCHLORIDE
     Indication: URTICARIA
     Dosage: 25 MG, (1 ML OF 25 MG/ML OF PROMETHAZINE)
     Route: 065

REACTIONS (7)
  - Extravasation [Unknown]
  - Blister [Recovered/Resolved]
  - Skin hyperpigmentation [Unknown]
  - Peripheral swelling [Unknown]
  - Purpura [Unknown]
  - Skin necrosis [Unknown]
  - Oedema peripheral [Unknown]
